FAERS Safety Report 7529117-X (Version None)
Quarter: 2011Q2

REPORT INFORMATION
  Report Type: 
  Country: None (occurrence: None)
  Receive Date: 20110607
  Receipt Date: 20110526
  Transmission Date: 20111010
  Serious: Yes (Life-Threatening)
  Sender: FDA-Public Use
  Company Number: NO-JNJFOC-20110602021

PATIENT
  Age: 8 Year
  Sex: Male

DRUGS (4)
  1. METHOTREXATE [Suspect]
     Indication: BONE SARCOMA
     Route: 065
  2. IFOSFAMIDE [Suspect]
     Indication: BONE SARCOMA
     Route: 065
  3. CISPLATIN [Suspect]
     Indication: BONE SARCOMA
     Route: 065
  4. DOXORUBICIN HCL [Suspect]
     Indication: BONE SARCOMA
     Route: 042

REACTIONS (4)
  - THROMBOCYTOPENIA [None]
  - ENTEROCOLITIS [None]
  - NEUTROPENIA [None]
  - OFF LABEL USE [None]
